FAERS Safety Report 7434521-4 (Version None)
Quarter: 2011Q2

REPORT INFORMATION
  Report Type: 
  Country: None (occurrence: None)
  Receive Date: 20110425
  Receipt Date: 20110411
  Transmission Date: 20111010
  Serious: Yes (Death)
  Sender: FDA-Public Use
  Company Number: JP-AMGEN-JPNCT2010009634

PATIENT
  Age: 61 Year
  Sex: Male
  Weight: 60 kg

DRUGS (20)
  1. KYTRIL [Concomitant]
     Route: 041
     Dates: start: 20101111, end: 20101111
  2. BLOPRESS TABLETS 12 [Concomitant]
  3. CLARITH [Concomitant]
     Route: 048
  4. HALCION [Concomitant]
     Indication: INSOMNIA
     Route: 048
  5. LOXONIN [Concomitant]
  6. MOHRUS TAPE L [Concomitant]
     Route: 062
  7. BUP-4 [Concomitant]
     Indication: BENIGN PROSTATIC HYPERPLASIA
     Route: 048
  8. PL [Concomitant]
     Route: 048
  9. DEXART [Concomitant]
     Route: 041
     Dates: start: 20101111, end: 20101111
  10. UZEL [Suspect]
     Indication: COLORECTAL CANCER
     Route: 048
     Dates: start: 20100901, end: 20101001
  11. AVASTIN [Suspect]
     Indication: COLORECTAL CANCER
     Route: 041
     Dates: start: 20100901, end: 20101001
  12. VITAMEDIN [Concomitant]
     Route: 048
  13. PANITUMUMAB [Suspect]
     Indication: COLORECTAL CANCER
     Dosage: 6 MG/KG, Q2WK
     Route: 041
     Dates: start: 20101111, end: 20101111
  14. 2MG CERCINE TABLETS [Concomitant]
  15. LOPEMIN [Concomitant]
     Indication: DIARRHOEA
     Route: 048
  16. CORTICOSTEROIDS [Concomitant]
     Indication: PROPHYLAXIS
     Route: 065
  17. UFT [Suspect]
     Indication: COLORECTAL CANCER
     Route: 048
     Dates: start: 20100901, end: 20101001
  18. MUCOSTA [Concomitant]
  19. VITAMEDIN CAPSULE [Concomitant]
     Route: 048
  20. FLIVAS OD [Concomitant]
     Indication: BENIGN PROSTATIC HYPERPLASIA
     Route: 048

REACTIONS (1)
  - INTERSTITIAL LUNG DISEASE [None]
